FAERS Safety Report 18853289 (Version 1)
Quarter: 2021Q1

REPORT INFORMATION
  Report Type: Spontaneous
  Country: CN (occurrence: CN)
  Receive Date: 20210205
  Receipt Date: 20210205
  Transmission Date: 20210420
  Serious: Yes (Other)
  Sender: FDA-Public Use
  Company Number: CN-ELI_LILLY_AND_COMPANY-CN202101012431

PATIENT
  Sex: Female
  Weight: 56 kg

DRUGS (3)
  1. OLANZAPINE DR REDDY [Suspect]
     Active Substance: OLANZAPINE
     Indication: DEPRESSION
     Dosage: UNK UNK, UNKNOWN
     Route: 048
     Dates: start: 20201222
  2. OLANZAPINE DR REDDY [Suspect]
     Active Substance: OLANZAPINE
     Dosage: 1.25 MG, BID
     Route: 048
     Dates: end: 20210104
  3. DULOXETINE HYDROCHLORIDE 60MG [Suspect]
     Active Substance: DULOXETINE HYDROCHLORIDE
     Indication: DEPRESSION
     Dosage: 60 MG, DAILY
     Route: 048
     Dates: start: 20201222, end: 20210104

REACTIONS (3)
  - Headache [Unknown]
  - Muscular weakness [Unknown]
  - Dizziness [Unknown]
